FAERS Safety Report 9105454 (Version 1)
Quarter: 2013Q1

REPORT INFORMATION
  Report Type: Spontaneous
  Country: US (occurrence: US)
  Receive Date: 20130220
  Receipt Date: 20130220
  Transmission Date: 20140127
  Serious: Yes (Death, Other)
  Sender: FDA-Public Use
  Company Number: US-OTSUKA-US-2012-11836

PATIENT
  Sex: Male

DRUGS (1)
  1. SAMSCA [Suspect]
     Indication: HYPONATRAEMIA
     Dosage: 15 MG MILLIGRAM(S), DAILY DOSE
     Dates: start: 20121017, end: 20121210

REACTIONS (5)
  - Malaise [Unknown]
  - Aortic valve stenosis [None]
  - Respiratory failure [None]
  - Pulmonary oedema [None]
  - Cardiac failure congestive [Fatal]
